FAERS Safety Report 7816094-7 (Version None)
Quarter: 2011Q4

REPORT INFORMATION
  Report Type: 
  Country: None (occurrence: None)
  Receive Date: 20111015
  Receipt Date: 20111005
  Transmission Date: 20120403
  Serious: Yes (Hospitalization, Other)
  Sender: FDA-Public Use
  Company Number: US-ASTRAZENECA-2011SE60276

PATIENT
  Age: 78 Year
  Sex: Male

DRUGS (2)
  1. PRILOSEC [Suspect]
     Route: 048
  2. NEXIUM [Suspect]
     Route: 048

REACTIONS (5)
  - HYPERTENSION [None]
  - DRUG INEFFECTIVE [None]
  - AORTIC ANEURYSM [None]
  - HIATUS HERNIA [None]
  - AORTIC ANEURYSM RUPTURE [None]
